FAERS Safety Report 5472345-8 (Version None)
Quarter: 2007Q3

REPORT INFORMATION
  Report Type: 
  Country: None (occurrence: None)
  Receive Date: 20070930
  Receipt Date: 20070921
  Transmission Date: 20080115
  Serious: Yes (Other)
  Sender: FDA-Public Use
  Company Number: GB-SHR-GB-2007-035677

PATIENT
  Age: 50 Year
  Sex: Female

DRUGS (1)
  1. MIRENA [Suspect]
     Indication: MENORRHAGIA
     Dosage: 20 A?G/DAY, CONT
     Route: 015
     Dates: start: 20061101

REACTIONS (1)
  - RETINAL VEIN OCCLUSION [None]
